FAERS Safety Report 6279716-0 (Version None)
Quarter: 2009Q3

REPORT INFORMATION
  Report Type: 
  Country: None (occurrence: None)
  Receive Date: 20090721
  Receipt Date: 20090709
  Transmission Date: 20100115
  Serious: Yes (Death, Other)
  Sender: FDA-Public Use
  Company Number: 2009AL004616

PATIENT
  Age: 21 Year
  Sex: Male

DRUGS (6)
  1. DIAZEPAM [Suspect]
     Indication: DRUG USE FOR UNKNOWN INDICATION
  2. OXAZEPAM CAPSULES USP [Suspect]
     Indication: DRUG USE FOR UNKNOWN INDICATION
  3. NORDAZEPAM [Concomitant]
  4. SUBOXONE [Concomitant]
  5. KETAMINE HCL [Concomitant]
  6. AMPHETAMINE SULFATE [Concomitant]

REACTIONS (4)
  - DRUG DIVERSION [None]
  - PORTAL TRIADITIS [None]
  - PULMONARY OEDEMA [None]
  - THERAPEUTIC AGENT TOXICITY [None]
